FAERS Safety Report 16697263 (Version 1)
Quarter: 2019Q3

REPORT INFORMATION
  Report Type: Spontaneous
  Country: US (occurrence: US)
  Receive Date: 20190809
  Receipt Date: 20190809
  Transmission Date: 20191004
  Serious: Yes (Other)
  Sender: FDA-Public Use
  Company Number: None

PATIENT
  Age: 40 Year
  Sex: Female
  Weight: 69.75 kg

DRUGS (1)
  1. PRAZIQUANTEL 300 MG CAPSULES [Suspect]
     Active Substance: PRAZIQUANTEL
     Indication: INFECTION PARASITIC
     Dosage: ?          QUANTITY:4 CAPSULE(S);?
     Route: 048
     Dates: start: 20190805, end: 20190805

REACTIONS (5)
  - Eye swelling [None]
  - Swelling face [None]
  - Pruritus [None]
  - Drug hypersensitivity [None]
  - Erythema [None]

NARRATIVE: CASE EVENT DATE: 20190805
